FAERS Safety Report 5524941-7 (Version None)
Quarter: 2007Q4

REPORT INFORMATION
  Report Type: 
  Country: None (occurrence: None)
  Receive Date: 20071126
  Receipt Date: 20071117
  Transmission Date: 20080405
  Serious: Yes (Death, Hospitalization)
  Sender: FDA-Public Use
  Company Number: HQWYE107809MAY07

PATIENT
  Sex: Male
  Weight: 65 kg

DRUGS (10)
  1. MYLOTARG [Suspect]
     Indication: ACUTE MYELOID LEUKAEMIA RECURRENT
     Route: 041
     Dates: start: 20070302, end: 20070302
  2. MYLOTARG [Suspect]
     Route: 041
     Dates: start: 20070316, end: 20070316
  3. ITRIZOLE [Suspect]
     Route: 041
     Dates: start: 20070323, end: 20070405
  4. MAXIPIME [Suspect]
     Route: 041
     Dates: start: 20070307, end: 20070312
  5. MAXIPIME [Suspect]
     Route: 041
     Dates: start: 20070318, end: 20070331
  6. IDAMYCIN [Concomitant]
     Indication: ACUTE MYELOID LEUKAEMIA RECURRENT
     Dosage: UNKNOWN
     Route: 042
     Dates: start: 20070314, end: 20070315
  7. NOVANTRONE [Suspect]
     Indication: ACUTE MYELOID LEUKAEMIA RECURRENT
     Dosage: UNKNOWN
     Route: 042
     Dates: start: 20070329, end: 20070330
  8. NOVANTRONE [Suspect]
     Dosage: UNKNOWN
     Route: 042
     Dates: start: 20070330, end: 20070330
  9. NOVANTRONE [Suspect]
     Dosage: UNKNOWN
     Route: 042
     Dates: start: 20070413, end: 20070413
  10. NOVANTRONE [Suspect]
     Dosage: UNKNOWN
     Route: 042
     Dates: start: 20070425, end: 20070425

REACTIONS (9)
  - ANAEMIA [None]
  - BLOOD LACTATE DEHYDROGENASE INCREASED [None]
  - C-REACTIVE PROTEIN INCREASED [None]
  - CONDITION AGGRAVATED [None]
  - FEBRILE NEUTROPENIA [None]
  - HAEMATEMESIS [None]
  - HAEMATURIA [None]
  - HYPOKALAEMIA [None]
  - PLATELET COUNT DECREASED [None]
